FAERS Safety Report 15724194 (Version 1)
Quarter: 2018Q4

REPORT INFORMATION
  Report Type: Spontaneous
  Country: FR (occurrence: FR)
  Receive Date: 20181214
  Receipt Date: 20181214
  Transmission Date: 20190205
  Serious: Yes (Hospitalization, Other)
  Sender: FDA-Public Use
  Company Number: FR-GILEAD-2018-0380312

PATIENT
  Sex: Female
  Weight: 46 kg

DRUGS (3)
  1. KALETRA [Concomitant]
     Active Substance: LOPINAVIR\RITONAVIR
     Indication: HIV INFECTION
     Route: 048
     Dates: start: 20090927, end: 201709
  2. REYATAZ [Concomitant]
     Active Substance: ATAZANAVIR SULFATE
     Indication: HIV INFECTION
     Route: 048
     Dates: start: 20090927, end: 201709
  3. VIREAD [Suspect]
     Active Substance: TENOFOVIR DISOPROXIL FUMARATE
     Indication: HIV INFECTION
     Route: 048
     Dates: start: 20041004, end: 201709

REACTIONS (3)
  - Renal tubular dysfunction [Not Recovered/Not Resolved]
  - Renal failure [Not Recovered/Not Resolved]
  - Antiviral drug level above therapeutic [Recovered/Resolved]

NARRATIVE: CASE EVENT DATE: 2011
